FAERS Safety Report 7286136-9 (Version None)
Quarter: 2011Q1

REPORT INFORMATION
  Report Type: 
  Country: None (occurrence: None)
  Receive Date: 20110126
  Receipt Date: 20110121
  Transmission Date: 20110831
  Serious: Yes (Hospitalization, Other)
  Sender: FDA-Public Use
  Company Number: 2010SP014804

PATIENT
  Age: 21 Year
  Sex: Female

DRUGS (1)
  1. NUVARING [Suspect]
     Indication: CONTRACEPTION
     Dates: start: 20081024, end: 20090308

REACTIONS (9)
  - PULMONARY EMBOLISM [None]
  - MUSCULOSKELETAL PAIN [None]
  - UNEMPLOYMENT [None]
  - BACK PAIN [None]
  - NECK PAIN [None]
  - PALPITATIONS [None]
  - HYDRONEPHROSIS [None]
  - ROAD TRAFFIC ACCIDENT [None]
  - MIGRAINE [None]
